FAERS Safety Report 16420271 (Version 1)
Quarter: 2019Q2

REPORT INFORMATION
  Report Type: Spontaneous
  Country: US (occurrence: US)
  Receive Date: 20190612
  Receipt Date: 20190612
  Transmission Date: 20190711
  Serious: No
  Sender: FDA-Public Use
  Company Number: US-PFIZER INC-2019243344

PATIENT
  Sex: Female

DRUGS (1)
  1. ADVIL [Suspect]
     Active Substance: IBUPROFEN
     Indication: DYSMENORRHOEA
     Dosage: 3 DF, UNK (TOOK 3 ADVIL IN LESS THAN A 4 HOUR SPAN)

REACTIONS (2)
  - Intentional product misuse [Unknown]
  - Drug ineffective [Unknown]
